FAERS Safety Report 25322482 (Version 1)
Quarter: 2025Q2

REPORT INFORMATION
  Report Type: Spontaneous
  Country: US (occurrence: US)
  Receive Date: 20250516
  Receipt Date: 20250516
  Transmission Date: 20250716
  Serious: No
  Sender: GLAXOSMITHKLINE
  Company Number: US-GSK-US2025057574

PATIENT
  Sex: Male

DRUGS (1)
  1. TRELEGY ELLIPTA [Suspect]
     Active Substance: FLUTICASONE FUROATE\UMECLIDINIUM BROMIDE\VILANTEROL TRIFENATATE
     Indication: Sinusitis
     Dosage: 1 PUFF(S), QD 100/62.5/25
     Route: 055

REACTIONS (3)
  - Off label use [Unknown]
  - Product packaging confusion [Unknown]
  - Product communication issue [Unknown]

NARRATIVE: CASE EVENT DATE: 20250508
